FAERS Safety Report 5306106-7 (Version None)
Quarter: 2007Q2

REPORT INFORMATION
  Report Type: 
  Country: None (occurrence: None)
  Receive Date: 20070424
  Receipt Date: 20061114
  Transmission Date: 20071010
  Serious: No
  Sender: FDA-Public Use
  Company Number: US-BRISTOL-MYERS SQUIBB COMPANY-13577754

PATIENT
  Age: 49 Year
  Sex: Male
  Weight: 71 kg

DRUGS (5)
  1. CARBOPLATIN [Suspect]
     Indication: TONGUE NEOPLASM MALIGNANT STAGE UNSPECIFIED
     Route: 042
     Dates: start: 20060911, end: 20060911
  2. ALOXI [Suspect]
     Indication: TONGUE NEOPLASM MALIGNANT STAGE UNSPECIFIED
     Route: 042
     Dates: start: 20061016, end: 20061016
  3. LEVOFLOXACIN [Concomitant]
     Indication: PNEUMONIA
  4. CLINDAMYCIN [Concomitant]
  5. FLUCONAZOLE [Concomitant]

REACTIONS (2)
  - NAUSEA [None]
  - VOMITING [None]
